FAERS Safety Report 7796298-2 (Version None)
Quarter: 2011Q4

REPORT INFORMATION
  Report Type: 
  Country: None (occurrence: None)
  Receive Date: 20111005
  Receipt Date: 20110930
  Transmission Date: 20120403
  Serious: Yes (Hospitalization)
  Sender: FDA-Public Use
  Company Number: FR-AMGEN-FRANI2011050583

PATIENT
  Age: 55 Year
  Sex: Male

DRUGS (1)
  1. PANITUMUMAB [Suspect]
     Indication: COLORECTAL CANCER METASTATIC
     Dosage: UNK UNK, Q2MO
     Route: 042
     Dates: start: 20110705

REACTIONS (3)
  - HYPOTHERMIA [None]
  - DEVICE RELATED INFECTION [None]
  - GENERAL PHYSICAL HEALTH DETERIORATION [None]
